FAERS Safety Report 5630823-2 (Version None)
Quarter: 2008Q1

REPORT INFORMATION
  Report Type: 
  Country: None (occurrence: None)
  Receive Date: 20080213
  Receipt Date: 20080204
  Transmission Date: 20080703
  Serious: Yes (Death)
  Sender: FDA-Public Use
  Company Number: 2008-01016

PATIENT
  Age: 65 Year
  Sex: Female

DRUGS (10)
  1. MICROZIDE [Suspect]
  2. CLONAZEPAM [Suspect]
  3. CHLORDIAZEPOXIDE AND AMITRIPTYLINE [Suspect]
  4. BUSPIRONE HCL [Suspect]
  5. OXYCODONE HYDROCHLORIDE AND ACETAMINOPHEN [Suspect]
  6. CALCIUM ANTAGONIST() [Suspect]
  7. ANTIPSYCHOTIC, ATYPICAL() [Suspect]
  8. COX-2 INHIBITOR() [Suspect]
  9. ANTIHYPERLIPIDEMIC() [Suspect]
  10. ANTIHISTAMINES() [Suspect]

REACTIONS (1)
  - DEATH [None]
